FAERS Safety Report 12602830 (Version 2)
Quarter: 2016Q3

REPORT INFORMATION
  Report Type: Spontaneous
  Country: JP (occurrence: JP)
  Receive Date: 20160728
  Receipt Date: 20160815
  Transmission Date: 20161109
  Serious: Yes (Other)
  Sender: FDA-Public Use
  Company Number: JP-PFIZER INC-2016355045

PATIENT
  Age: 3 Year

DRUGS (1)
  1. EPIPEN [Suspect]
     Active Substance: EPINEPHRINE
     Dosage: UNK
     Route: 030

REACTIONS (5)
  - Accidental exposure to product by child [Unknown]
  - Injection site injury [Unknown]
  - Injection site ischaemia [Unknown]
  - Injection site discolouration [Unknown]
  - Injection site swelling [Unknown]
